FAERS Safety Report 7481123-X (Version None)
Quarter: 2011Q2

REPORT INFORMATION
  Report Type: 
  Country: None (occurrence: None)
  Receive Date: 20110516
  Receipt Date: 20110502
  Transmission Date: 20111010
  Serious: Yes (Hospitalization, Other)
  Sender: FDA-Public Use
  Company Number: US-ELI_LILLY_AND_COMPANY-US201011004599

PATIENT
  Sex: Female
  Weight: 39.002 kg

DRUGS (12)
  1. FORTEO [Suspect]
     Dosage: 20 UG, QD
  2. CALCIUM [Concomitant]
     Dosage: 600 MG, UNKNOWN
  3. MULTI-VITAMIN [Concomitant]
  4. LISINOPRIL [Concomitant]
  5. FORTEO [Suspect]
     Indication: OSTEOPOROSIS
     Dosage: 20 UG, DAILY (1/D)
     Dates: start: 20101030
  6. FORTEO [Suspect]
     Dosage: 20 UG, DAILY (1/D)
  7. METOPROLOL SUCCINATE [Concomitant]
     Dosage: 25 MG, UNKNOWN
  8. FORTEO [Suspect]
     Dosage: 20 UG, DAILY (1/D)
  9. PRAVASTATIN SODIUM [Concomitant]
  10. FERREX [Concomitant]
  11. IMODIUM [Concomitant]
  12. OMEPRAZOLE [Concomitant]

REACTIONS (9)
  - MALAISE [None]
  - PAIN [None]
  - GAIT DISTURBANCE [None]
  - INJECTION SITE HAEMATOMA [None]
  - HIP FRACTURE [None]
  - DRUG INEFFECTIVE [None]
  - MUSCLE SPASMS [None]
  - FALL [None]
  - CONTUSION [None]
